FAERS Safety Report 8216705-0 (Version None)
Quarter: 2012Q1

REPORT INFORMATION
  Report Type: 
  Country: None (occurrence: None)
  Receive Date: 20120316
  Receipt Date: 20120307
  Transmission Date: 20120608
  Serious: Yes (Other)
  Sender: FDA-Public Use
  Company Number: FR-FRI-1000029128

PATIENT
  Age: 46 Year
  Sex: Male

DRUGS (2)
  1. MIRTAZAPINE [Concomitant]
     Dosage: 15 MG
  2. ESCITALOPRAM [Suspect]
     Dosage: 10 MG

REACTIONS (2)
  - EPILEPSY [None]
  - TETANY [None]
